FAERS Safety Report 17099813 (Version 1)
Quarter: 2019Q4

REPORT INFORMATION
  Report Type: Spontaneous
  Country: FR (occurrence: FR)
  Receive Date: 20191202
  Receipt Date: 20191202
  Transmission Date: 20200122
  Serious: Yes (Hospitalization)
  Sender: FDA-Public Use
  Company Number: FR-009507513-1911FRA010304

PATIENT
  Age: 70 Year
  Sex: Male
  Weight: 84 kg

DRUGS (16)
  1. POSACONAZOLE [Suspect]
     Active Substance: POSACONAZOLE
     Indication: INFECTION
     Dosage: UNK
     Route: 042
     Dates: start: 20190916, end: 20190919
  2. AMLODIPINE [Concomitant]
     Active Substance: AMLODIPINE BESYLATE
     Dosage: UNK
     Route: 048
     Dates: start: 20190924
  3. VANCOMYCIN [Concomitant]
     Active Substance: VANCOMYCIN
     Dosage: UNK
     Route: 042
     Dates: start: 20190916, end: 20190917
  4. CIPROFLOXACIN. [Suspect]
     Active Substance: CIPROFLOXACIN
     Indication: INFECTION
     Dosage: UNK
     Route: 048
     Dates: start: 20190923, end: 20190927
  5. NEBIVOLOL. [Concomitant]
     Active Substance: NEBIVOLOL
     Dosage: UNK
     Route: 048
  6. MEROPENEM. [Suspect]
     Active Substance: MEROPENEM
     Indication: INFECTION
     Dosage: UNK
     Route: 042
     Dates: start: 20190923
  7. PREGABALIN. [Concomitant]
     Active Substance: PREGABALIN
     Dosage: UNK
     Route: 048
  8. CYTARABINE. [Concomitant]
     Active Substance: CYTARABINE
     Dosage: UNK
     Route: 042
     Dates: start: 20190909, end: 20190915
  9. IDARUBICIN HYDROCHLORIDE. [Concomitant]
     Active Substance: IDARUBICIN HYDROCHLORIDE
     Dosage: UNK
     Route: 042
     Dates: start: 20190911, end: 20190915
  10. GLICLAZIDE [Concomitant]
     Active Substance: GLICLAZIDE
     Dosage: UNK
     Route: 048
  11. DIFFU-K [Concomitant]
     Active Substance: POTASSIUM CHLORIDE
     Dosage: UNK
     Route: 048
     Dates: start: 20190917
  12. PANTOPRAZOLE [Concomitant]
     Active Substance: PANTOPRAZOLE
     Dosage: UNK
     Route: 048
     Dates: start: 20190916
  13. CASPOFUNGIN ACETATE. [Suspect]
     Active Substance: CASPOFUNGIN ACETATE
     Indication: ANTIBIOTIC PROPHYLAXIS
     Dosage: FUNGUS/GLAREA LOZOYENSIS
     Route: 042
     Dates: start: 20190918
  14. CEFAZOLIN [Suspect]
     Active Substance: CEFAZOLIN
     Indication: INFECTION
     Dosage: UNK
     Route: 042
     Dates: start: 20190916, end: 20190923
  15. GAVISCON (ALGINIC ACID (+) ALUMINUM HYDROXIDE (+) MAGNESIUM TRISILICAT [Concomitant]
     Active Substance: ALGINIC ACID\ALUMINUM HYDROXIDE\MAGNESIUM TRISILICATE
     Dosage: UNK
     Route: 048
  16. KARDEGIC [Concomitant]
     Active Substance: ASPIRIN DL-LYSINE
     Dosage: POWDER FOR ORAL SOLUTION IN SINGLE SACHET
     Route: 048

REACTIONS (2)
  - Hyperbilirubinaemia [Recovering/Resolving]
  - Jaundice cholestatic [Recovering/Resolving]

NARRATIVE: CASE EVENT DATE: 20190919
